FAERS Safety Report 9426872 (Version 1)
Quarter: 2013Q3

REPORT INFORMATION
  Report Type: Spontaneous
  Country: US (occurrence: US)
  Receive Date: 20130730
  Receipt Date: 20130730
  Transmission Date: 20140515
  Serious: No
  Sender: FDA-Public Use
  Company Number: US-SANOFI-AVENTIS-2013SA024989

PATIENT
  Age: 37 Year
  Sex: Male

DRUGS (1)
  1. AMBIEN CR [Suspect]
     Indication: INSOMNIA
     Dosage: 12.5 MG, 25MG, 37.5MG
     Route: 048
     Dates: start: 201212

REACTIONS (5)
  - Circadian rhythm sleep disorder [Not Recovered/Not Resolved]
  - Insomnia [Not Recovered/Not Resolved]
  - Drug ineffective [Unknown]
  - Intentional overdose [Unknown]
  - Drug tolerance increased [Unknown]
